FAERS Safety Report 8280962-5 (Version None)
Quarter: 2012Q2

REPORT INFORMATION
  Report Type: 
  Country: None (occurrence: None)
  Receive Date: 20120412
  Receipt Date: 20120327
  Transmission Date: 20120825
  Serious: No
  Sender: FDA-Public Use
  Company Number: MX-BAXTER-2012BAX001428

PATIENT
  Sex: Female

DRUGS (8)
  1. CALCITRIOL [Concomitant]
  2. CALCIUM CARBONATE [Concomitant]
     Route: 048
  3. VITAMIN B COMPLEX CAP [Concomitant]
     Route: 048
  4. DIANEAL_2.5% PD2_SOLUTION FOR PERITONEAL DIALYSIS_BAG, PVC [Suspect]
     Indication: RENAL FAILURE CHRONIC
     Route: 033
  5. FERROUS FUMARATE [Concomitant]
     Route: 048
  6. EPOGEN [Concomitant]
     Route: 058
  7. FOLIC ACID [Concomitant]
     Route: 048
  8. FUROSEMIDE [Concomitant]
     Route: 048

REACTIONS (1)
  - INFECTIOUS PERITONITIS [None]
